FAERS Safety Report 6390977-X (Version None)
Quarter: 2009Q4

REPORT INFORMATION
  Report Type: 
  Country: None (occurrence: None)
  Receive Date: 20091006
  Receipt Date: 20090924
  Transmission Date: 20100525
  Serious: Yes (Hospitalization, Disabling, Other)
  Sender: FDA-Public Use
  Company Number: US-ELI_LILLY_AND_COMPANY-US200909006075

PATIENT
  Sex: Female

DRUGS (2)
  1. CYMBALTA [Suspect]
     Indication: RHEUMATOID ARTHRITIS
     Dosage: 120 MG, DAILY (1/D)
     Route: 065
     Dates: start: 19940101, end: 20040101
  2. CYMBALTA [Suspect]
     Dosage: 60 MG, DAILY (1/D)
     Route: 065
     Dates: start: 20040101

REACTIONS (10)
  - ATAXIA [None]
  - CEREBROVASCULAR ACCIDENT [None]
  - DISABILITY [None]
  - HOSPITALISATION [None]
  - INFARCTION [None]
  - OFF LABEL USE [None]
  - SPEECH DISORDER [None]
  - SPLENIC VEIN THROMBOSIS [None]
  - THROMBOSIS [None]
  - TRANSFUSION [None]
